FAERS Safety Report 9523431 (Version 1)
Quarter: 2013Q1

REPORT INFORMATION
  Report Type: Spontaneous
  Country: US (occurrence: None)
  Receive Date: 20130305
  Receipt Date: 20130305
  Transmission Date: 20140127
  Serious: Yes (Hospitalization, Other)
  Sender: FDA-Public Use
  Company Number: 163-21880-12012633

PATIENT
  Age: 37 Year
  Sex: Female
  Weight: 88.45 kg

DRUGS (4)
  1. REVLIMID (LENALIDOMIDE) (25 MILLIGRAM, CAPSULES) [Suspect]
     Indication: PLASMA CELL MYELOMA
     Dosage: 25 MG, DAILY FOR 21 DAYS, PO
     Route: 048
     Dates: start: 20111114, end: 20120203
  2. BYSTOLIC (NEBIVOLOL HYDROCHLORIDE) (UNKNOWN) [Concomitant]
  3. FELODIPINE (FELODIPINE) (UNKNOWN) [Concomitant]
  4. LOESTRIN (ANOVLAR) (UNKNOWN) [Concomitant]

REACTIONS (4)
  - Platelet count decreased [None]
  - Neutrophil count decreased [None]
  - Haemoglobin decreased [None]
  - White blood cell count decreased [None]
